FAERS Safety Report 13730539 (Version 1)
Quarter: 2017Q3

REPORT INFORMATION
  Report Type: Spontaneous
  Country: US (occurrence: US)
  Receive Date: 20170707
  Receipt Date: 20170707
  Transmission Date: 20171127
  Serious: Yes (Hospitalization)
  Sender: FDA-Public Use
  Company Number: US-JNJFOC-20170409382

PATIENT
  Age: 36 Year
  Sex: Female

DRUGS (4)
  1. XARELTO [Suspect]
     Active Substance: RIVAROXABAN
     Indication: PULMONARY EMBOLISM
     Route: 048
     Dates: start: 20130918
  2. XARELTO [Suspect]
     Active Substance: RIVAROXABAN
     Indication: PELVIC VENOUS THROMBOSIS
     Route: 048
     Dates: start: 20130918
  3. XARELTO [Suspect]
     Active Substance: RIVAROXABAN
     Indication: PULMONARY EMBOLISM
     Route: 048
     Dates: start: 20130922, end: 20140211
  4. XARELTO [Suspect]
     Active Substance: RIVAROXABAN
     Indication: PELVIC VENOUS THROMBOSIS
     Route: 048
     Dates: start: 20130922, end: 20140211

REACTIONS (1)
  - Menorrhagia [Unknown]

NARRATIVE: CASE EVENT DATE: 20140129
